FAERS Safety Report 21847004 (Version 1)
Quarter: 2023Q1

REPORT INFORMATION
  Report Type: Report from Study
  Country: TW (occurrence: TW)
  Receive Date: 20230111
  Receipt Date: 20230111
  Transmission Date: 20230417
  Serious: Yes (Other)
  Sender: FDA-Public Use
  Company Number: TW-BAYER-2023A001564

PATIENT
  Age: 58 Year
  Sex: Male

DRUGS (1)
  1. EYLEA [Suspect]
     Active Substance: AFLIBERCEPT
     Indication: Diabetic retinal oedema
     Dosage: 0.05 ML, ONCE, SOLUTION FOR INJECTION
     Route: 031

REACTIONS (7)
  - Surgery [Unknown]
  - Surgery [Unknown]
  - Central serous chorioretinopathy [Unknown]
  - Macular degeneration [Unknown]
  - Cataract [Unknown]
  - Conjunctivitis [Unknown]
  - Ocular discomfort [Unknown]

NARRATIVE: CASE EVENT DATE: 20221117
